FAERS Safety Report 5265914-1 (Version None)
Quarter: 2007Q1

REPORT INFORMATION
  Report Type: 
  Country: None (occurrence: None)
  Receive Date: 20070315
  Receipt Date: 20070312
  Transmission Date: 20070707
  Serious: Yes (Hospitalization)
  Sender: FDA-Public Use
  Company Number: FR-SP-2006-01375

PATIENT
  Age: 75 Year
  Sex: Male
  Weight: 68 kg

DRUGS (1)
  1. IMMUCYST [Suspect]
     Indication: BLADDER CANCER
     Route: 043
     Dates: start: 20060317

REACTIONS (7)
  - ADVERSE DRUG REACTION [None]
  - CYSTITIS [None]
  - DYSPNOEA [None]
  - HEPATITIS [None]
  - MEDICATION ERROR [None]
  - PULMONARY TUBERCULOSIS [None]
  - PYREXIA [None]
